FAERS Safety Report 7639013-5 (Version None)
Quarter: 2011Q3

REPORT INFORMATION
  Report Type: 
  Country: None (occurrence: None)
  Receive Date: 20110727
  Receipt Date: 20110725
  Transmission Date: 20111222
  Serious: Yes (Other)
  Sender: FDA-Public Use
  Company Number: US-PFIZER INC-2011082228

PATIENT
  Sex: Female

DRUGS (20)
  1. AMITRIPTYLINE [Concomitant]
     Indication: MIGRAINE
  2. ADVAIR DISKUS 100/50 [Concomitant]
     Indication: CHRONIC OBSTRUCTIVE PULMONARY DISEASE
  3. THEO-DUR [Concomitant]
     Indication: CHRONIC OBSTRUCTIVE PULMONARY DISEASE
     Dosage: UNK
     Dates: start: 20030101
  4. ALBUTEROL SULFATE AUTOHALER [Concomitant]
     Indication: ASTHMA
     Dosage: UNK
     Dates: start: 20030101, end: 20090101
  5. AMITRIPTYLINE [Concomitant]
     Indication: INSOMNIA
     Dosage: UNK
     Dates: start: 20040101, end: 20100101
  6. RANITIDINE [Concomitant]
     Indication: GASTROOESOPHAGEAL REFLUX DISEASE
     Dosage: UNK
     Dates: start: 20050101, end: 20100101
  7. PREDNISONE [Concomitant]
     Dosage: UNK
     Dates: start: 20030101, end: 20100101
  8. FLONASE [Concomitant]
     Indication: ASTHMA
     Dosage: UNK
     Dates: start: 20040101
  9. VITAMIN D [Concomitant]
     Indication: VITAMIN D DEFICIENCY
     Dosage: UNK
     Dates: start: 20070101, end: 20100101
  10. TYLENOL-500 [Concomitant]
     Indication: PAIN
     Dosage: UNK
     Dates: start: 20030101
  11. ZYRTEC [Concomitant]
     Indication: HYPERSENSITIVITY
     Dosage: UNK
     Dates: start: 20030101
  12. CLOTRIMAZOLE [Concomitant]
     Indication: INFECTION
     Dosage: UNK
     Dates: start: 20040101, end: 20100101
  13. RELAFEN [Concomitant]
     Indication: RHEUMATOID ARTHRITIS
  14. CHANTIX [Suspect]
     Indication: SMOKING CESSATION THERAPY
     Dosage: STARTER PACK AND CONTINUING MONTH PACKS
     Dates: start: 20081022, end: 20081025
  15. ADVAIR DISKUS 100/50 [Concomitant]
     Indication: ASTHMA
     Dosage: UNK
     Dates: start: 20050101
  16. OSCAL [Concomitant]
     Dosage: UNK
     Dates: start: 20050101
  17. FLUOXETINE [Concomitant]
     Indication: DEPRESSION
     Dosage: UNK
     Dates: start: 20050101, end: 20090101
  18. IBUPROFEN [Concomitant]
     Indication: PAIN
     Dosage: UNK
     Dates: start: 20030101, end: 20100101
  19. LORATADINE [Concomitant]
     Indication: HYPERSENSITIVITY
     Dosage: UNK
     Dates: start: 20040101, end: 20090101
  20. RELAFEN [Concomitant]
     Indication: OSTEOARTHRITIS
     Dosage: UNK
     Dates: start: 20050101

REACTIONS (4)
  - SUICIDAL IDEATION [None]
  - DEPRESSION [None]
  - NIGHTMARE [None]
  - ANXIETY [None]
